FAERS Safety Report 13409463 (Version 2)
Quarter: 2017Q4

REPORT INFORMATION
  Report Type: Spontaneous
  Country: US (occurrence: US)
  Receive Date: 20170406
  Receipt Date: 20171123
  Transmission Date: 20180320
  Serious: No
  Sender: FDA-Public Use
  Company Number: US-JNJFOC-20170127163

PATIENT
  Age: 5 Year
  Sex: Male

DRUGS (15)
  1. RISPERDAL [Suspect]
     Active Substance: RISPERIDONE
     Indication: ANXIETY
     Route: 048
     Dates: end: 20140908
  2. RISPERDAL [Suspect]
     Active Substance: RISPERIDONE
     Indication: LEARNING DISORDER
     Dosage: DOSE: 1 TO 2 ML ONCE EVERY NIGHT
     Route: 048
     Dates: start: 20031011, end: 20031030
  3. RISPERDAL [Suspect]
     Active Substance: RISPERIDONE
     Indication: ANXIETY
     Dosage: DOSE: 1 TO 2 ML ONCE EVERY NIGHT
     Route: 048
     Dates: start: 20031011, end: 20031030
  4. RISPERIDONE. [Suspect]
     Active Substance: RISPERIDONE
     Indication: LEARNING DISORDER
     Dosage: IN VARYING DOSES OF 0.25 MG, 0.5 MG, 1 MG AND 2 MG
     Route: 065
     Dates: start: 20110801, end: 20140908
  5. RISPERDAL [Suspect]
     Active Substance: RISPERIDONE
     Indication: LEARNING DISORDER
     Route: 048
     Dates: start: 20031011
  6. RISPERDAL [Suspect]
     Active Substance: RISPERIDONE
     Indication: LEARNING DISORDER
     Route: 048
     Dates: end: 20140908
  7. RISPERDAL [Suspect]
     Active Substance: RISPERIDONE
     Indication: ATTENTION DEFICIT/HYPERACTIVITY DISORDER
     Dosage: IN VARYING DOSES OF 0.5 MG, 1 MG AND 2 MG OF VARYING FREQUENCY
     Route: 048
     Dates: start: 20080709, end: 201206
  8. RISPERDAL [Suspect]
     Active Substance: RISPERIDONE
     Indication: ANXIETY
     Dosage: IN VARYING DOSES OF 0.5 MG, 1 MG AND 2 MG OF VARYING FREQUENCY
     Route: 048
     Dates: start: 20080709, end: 201206
  9. RISPERDAL [Suspect]
     Active Substance: RISPERIDONE
     Indication: LEARNING DISORDER
     Dosage: IN VARYING DOSES OF 0.5 MG, 1 MG AND 2 MG OF VARYING FREQUENCY
     Route: 048
     Dates: start: 20080709, end: 201206
  10. RISPERDAL [Suspect]
     Active Substance: RISPERIDONE
     Indication: ANXIETY
     Route: 048
     Dates: start: 20031011
  11. RISPERDAL [Suspect]
     Active Substance: RISPERIDONE
     Indication: ATTENTION DEFICIT/HYPERACTIVITY DISORDER
     Route: 048
     Dates: start: 20031011
  12. RISPERDAL [Suspect]
     Active Substance: RISPERIDONE
     Indication: ATTENTION DEFICIT/HYPERACTIVITY DISORDER
     Route: 048
     Dates: end: 20140908
  13. RISPERIDONE. [Suspect]
     Active Substance: RISPERIDONE
     Indication: ANXIETY
     Dosage: IN VARYING DOSES OF 0.25 MG, 0.5 MG, 1 MG AND 2 MG
     Route: 065
     Dates: start: 20110801, end: 20140908
  14. RISPERIDONE. [Suspect]
     Active Substance: RISPERIDONE
     Indication: ATTENTION DEFICIT/HYPERACTIVITY DISORDER
     Dosage: IN VARYING DOSES OF 0.25 MG, 0.5 MG, 1 MG AND 2 MG
     Route: 065
     Dates: start: 20110801, end: 20140908
  15. RISPERDAL [Suspect]
     Active Substance: RISPERIDONE
     Indication: ATTENTION DEFICIT/HYPERACTIVITY DISORDER
     Dosage: DOSE: 1 TO 2 ML ONCE EVERY NIGHT
     Route: 048
     Dates: start: 20031011, end: 20031030

REACTIONS (6)
  - Gynaecomastia [Unknown]
  - Off label use [Unknown]
  - Emotional disorder [Unknown]
  - Product use in unapproved indication [Unknown]
  - Obesity [Not Recovered/Not Resolved]
  - Somnolence [Unknown]

NARRATIVE: CASE EVENT DATE: 20031011
